FAERS Safety Report 6188661-0 (Version None)
Quarter: 2009Q2

REPORT INFORMATION
  Report Type: 
  Country: None (occurrence: None)
  Receive Date: 20090513
  Receipt Date: 20090505
  Transmission Date: 20091009
  Serious: Yes (Hospitalization)
  Sender: FDA-Public Use
  Company Number: US-AVENTIS-200817586US

PATIENT
  Sex: Male

DRUGS (5)
  1. KETEK [Suspect]
     Route: 048
     Dates: start: 20040923
  2. RHINOCORT [Concomitant]
     Dosage: DOSE: UNK
  3. SINGULAIR [Concomitant]
  4. NEXIUM [Concomitant]
     Dosage: DOSE: UNK
  5. ALLEGRA [Concomitant]

REACTIONS (10)
  - ABDOMINAL PAIN [None]
  - ABDOMINAL PAIN UPPER [None]
  - DECREASED APPETITE [None]
  - DIARRHOEA [None]
  - LIVER FUNCTION TEST ABNORMAL [None]
  - MESENTERIC VEIN THROMBOSIS [None]
  - NAUSEA [None]
  - OCCULT BLOOD POSITIVE [None]
  - VARICOSE VEIN [None]
  - VOMITING [None]
